FAERS Safety Report 16458483 (Version 2)
Quarter: 2019Q3

REPORT INFORMATION
  Report Type: Spontaneous
  Country: US (occurrence: US)
  Receive Date: 20190620
  Receipt Date: 20190925
  Transmission Date: 20191004
  Serious: No
  Sender: FDA-Public Use
  Company Number: US-THERAPEUTICSMD-2019TMD00347

PATIENT
  Sex: Female

DRUGS (4)
  1. COMPOUNDED VAGINAL SUPPOSITORY FOR BLADDER AND PELVIC PAIN [Suspect]
     Active Substance: UNSPECIFIED INGREDIENT
     Indication: PELVIC PAIN
  2. IMVEXXY [Suspect]
     Active Substance: ESTRADIOL
     Dosage: 4 ?G, 2X/WEEK
     Route: 067
     Dates: start: 2019, end: 2019
  3. COMPOUNDED VAGINAL SUPPOSITORY FOR BLADDER AND PELVIC PAIN [Suspect]
     Active Substance: UNSPECIFIED INGREDIENT
     Indication: BLADDER PAIN
     Dosage: UNK
     Route: 067
     Dates: start: 201902
  4. IMVEXXY [Suspect]
     Active Substance: ESTRADIOL
     Dosage: 4 ?G, 1X/DAY
     Route: 067
     Dates: start: 20190204, end: 2019

REACTIONS (3)
  - Vulvovaginal pruritus [Recovered/Resolved]
  - Migraine [Unknown]
  - Vulvovaginal burning sensation [Recovered/Resolved]

NARRATIVE: CASE EVENT DATE: 2019
